FAERS Safety Report 4809718-X (Version None)
Quarter: 2005Q4

REPORT INFORMATION
  Report Type: 
  Country: None (occurrence: None)
  Receive Date: 20051024
  Receipt Date: 20051011
  Transmission Date: 20060501
  Serious: Yes (Other)
  Sender: FDA-Public Use
  Company Number: HQWYE976312OCT05

PATIENT
  Age: 56 Year
  Sex: Female
  Weight: 90.8 kg

DRUGS (12)
  1. RAPAMUNE [Suspect]
     Indication: PROPHYLAXIS AGAINST TRANSPLANT REJECTION
     Dosage: 6 MG 1X PER 1 DAY, ORAL
     Route: 048
     Dates: start: 20050901, end: 20051010
  2. MAGNESIUM OXIDE (MAGNESIUM OXIDE) [Concomitant]
  3. PROTONIX [Concomitant]
  4. BACTRIM [Concomitant]
  5. LASIX [Concomitant]
  6. ASPIRIN [Concomitant]
  7. VITAMIN E [Concomitant]
  8. VITAMIN B12 [Concomitant]
  9. ASACOL [Concomitant]
  10. PHENERGAN (DIBROMPROPAMIDINE ISETIONATE/PROMETHAZINE HYDROCHLORIDE) [Concomitant]
  11. QUININE SULFATE [Concomitant]
  12. ACTIGALL [Concomitant]

REACTIONS (1)
  - LIVER TRANSPLANT REJECTION [None]
